FAERS Safety Report 19929581 (Version 3)
Quarter: 2021Q4

REPORT INFORMATION
  Report Type: Spontaneous
  Country: JP (occurrence: JP)
  Receive Date: 20211007
  Receipt Date: 20211202
  Transmission Date: 20220304
  Serious: Yes (Death, Hospitalization)
  Sender: FDA-Public Use
  Company Number: JP-PFIZER INC-202101312454

PATIENT
  Age: 81 Year
  Sex: Male

DRUGS (6)
  1. ESTRAMUSTINE [Suspect]
     Active Substance: ESTRAMUSTINE
     Indication: Prostate cancer
     Dosage: 313.4 MG
     Route: 048
     Dates: start: 20210702, end: 20210922
  2. TOVIAZ [Concomitant]
     Active Substance: FESOTERODINE FUMARATE
     Indication: Hypertonic bladder
     Dosage: 4 MG
     Dates: start: 20140309, end: 20210922
  3. REBAMIPIDE [Concomitant]
     Active Substance: REBAMIPIDE
     Dosage: 300 MG
     Dates: start: 20200214, end: 20210922
  4. TORSEMIDE [Concomitant]
     Active Substance: TORSEMIDE
     Dosage: 4 MG
     Dates: start: 20200828, end: 20210922
  5. ACETAMINOPHEN [Concomitant]
     Active Substance: ACETAMINOPHEN
     Dosage: 1500 MG
     Dates: start: 20210903, end: 20210922
  6. ETOPOSIDE [Concomitant]
     Active Substance: ETOPOSIDE
     Dosage: 50 MG
     Dates: start: 20210702, end: 20210922

REACTIONS (3)
  - Cardiac failure [Fatal]
  - Pulmonary oedema [Unknown]
  - Haemoglobin decreased [Unknown]

NARRATIVE: CASE EVENT DATE: 20210716
